FAERS Safety Report 7674145-7 (Version None)
Quarter: 2011Q3

REPORT INFORMATION
  Report Type: 
  Country: None (occurrence: None)
  Receive Date: 20110808
  Receipt Date: 20110725
  Transmission Date: 20111222
  Serious: Yes (Death, Other)
  Sender: FDA-Public Use
  Company Number: USA/USA/11/0019201

PATIENT
  Age: 78 Year
  Sex: Male

DRUGS (1)
  1. CITALOPRAM HYDROBROMIDE [Suspect]
     Indication: PRODUCT USED FOR UNKNOWN INDICATION
     Dosage: 20 MG
     Dates: start: 20080425, end: 20080430

REACTIONS (5)
  - COMPLETED SUICIDE [None]
  - GUN SHOT WOUND [None]
  - HOMICIDE [None]
  - AGGRESSION [None]
  - SUICIDAL IDEATION [None]
